FAERS Safety Report 24449537 (Version 2)
Quarter: 2024Q4

REPORT INFORMATION
  Report Type: Spontaneous
  Country: US (occurrence: US)
  Receive Date: 20241017
  Receipt Date: 20241108
  Transmission Date: 20250115
  Serious: Yes (Other)
  Sender: ROCHE
  Company Number: US-ROCHE-10000107134

PATIENT
  Age: 86 Year
  Sex: Female

DRUGS (1)
  1. VABYSMO [Suspect]
     Active Substance: FARICIMAB-SVOA
     Indication: Diabetic retinal oedema
     Route: 050

REACTIONS (5)
  - Anterior chamber inflammation [Recovered/Resolved]
  - Eye pain [Recovering/Resolving]
  - Visual acuity reduced [Recovering/Resolving]
  - Keratic precipitates [Recovered/Resolved]
  - Retinal occlusive vasculitis [Unknown]
